FAERS Safety Report 14201741 (Version 1)
Quarter: 2017Q4

REPORT INFORMATION
  Report Type: Spontaneous
  Country: CN (occurrence: CN)
  Receive Date: 20171117
  Receipt Date: 20171117
  Transmission Date: 20180321
  Serious: Yes (Hospitalization, Other)
  Sender: FDA-Public Use
  Company Number: CN-ASTELLAS-2017US047590

PATIENT
  Age: 69 Year
  Sex: Female

DRUGS (2)
  1. TACROLIMUS. [Suspect]
     Active Substance: TACROLIMUS
     Indication: LUNG TRANSPLANT
     Route: 065
  2. TACROLIMUS. [Suspect]
     Active Substance: TACROLIMUS
     Route: 065

REACTIONS (10)
  - Diabetes mellitus [Unknown]
  - Nocardiosis [Unknown]
  - Tuberculosis [Unknown]
  - Pulmonary fibrosis [Unknown]
  - Pneumonia [Unknown]
  - Meningitis [Unknown]
  - Stenotrophomonas infection [Unknown]
  - Bacterial infection [Unknown]
  - Immunosuppressant drug level decreased [Unknown]
  - Central nervous system infection [Unknown]
